FAERS Safety Report 23311394 (Version 2)
Quarter: 2024Q1

REPORT INFORMATION
  Report Type: Spontaneous
  Country: US (occurrence: US)
  Receive Date: 20231219
  Receipt Date: 20240115
  Transmission Date: 20240410
  Serious: No
  Sender: FDA-Public Use
  Company Number: US-JNJFOC-20231214643

PATIENT
  Age: 30 Year
  Sex: Male

DRUGS (2)
  1. TREMFYA [Suspect]
     Active Substance: GUSELKUMAB
     Indication: Psoriatic arthropathy
     Route: 065
  2. TREMFYA [Suspect]
     Active Substance: GUSELKUMAB
     Indication: Psoriasis

REACTIONS (6)
  - Bronchitis [Unknown]
  - Device malfunction [Unknown]
  - Product dose omission issue [Unknown]
  - Discomfort [Unknown]
  - Accidental exposure to product [Unknown]
  - Device use issue [Unknown]

NARRATIVE: CASE EVENT DATE: 20231206
